FAERS Safety Report 17618532 (Version 3)
Quarter: 2020Q3

REPORT INFORMATION
  Report Type: Spontaneous
  Country: JP (occurrence: JP)
  Receive Date: 20200402
  Receipt Date: 20200703
  Transmission Date: 20201102
  Serious: Yes (Life-Threatening, Hospitalization, Other)
  Sender: FDA-Public Use
  Company Number: JP-B.I. PHARMACEUTICALS,INC./RIDGEFIELD-2020-NB-017465

PATIENT
  Age: 77 Year
  Sex: Male

DRUGS (2)
  1. EPADEL?S [Suspect]
     Active Substance: ICOSAPENT ETHYL
     Indication: PRODUCT USED FOR UNKNOWN INDICATION
     Route: 048
     Dates: end: 20200318
  2. PRAZAXA [Suspect]
     Active Substance: DABIGATRAN ETEXILATE MESYLATE
     Indication: PRODUCT USED FOR UNKNOWN INDICATION
     Route: 048
     Dates: end: 20200318

REACTIONS (5)
  - Multiple organ dysfunction syndrome [Recovered/Resolved]
  - Blood pressure decreased [Recovered/Resolved]
  - Haematemesis [Recovered/Resolved]
  - Acute kidney injury [Recovered/Resolved]
  - Altered state of consciousness [Recovered/Resolved]

NARRATIVE: CASE EVENT DATE: 20200317
